FAERS Safety Report 5875796-2 (Version None)
Quarter: 2008Q3

REPORT INFORMATION
  Report Type: 
  Country: None (occurrence: None)
  Receive Date: 20080909
  Receipt Date: 20080904
  Transmission Date: 20090109
  Serious: Yes (Life-Threatening, Hospitalization)
  Sender: FDA-Public Use
  Company Number: FI-PFIZER INC-2008073815

PATIENT
  Sex: Male

DRUGS (3)
  1. SALAZOPYRIN EN [Suspect]
     Indication: ANKYLOSING SPONDYLITIS
     Dosage: DAILY DOSE:2000MG-TEXT:2000MG DAILY
     Route: 048
     Dates: start: 20080717, end: 20080814
  2. SALAZOPYRIN EN [Suspect]
  3. NAPROMETIN [Concomitant]
     Indication: ANKYLOSING SPONDYLITIS
     Dosage: TEXT:0-1000MG DAILY
     Route: 048
     Dates: start: 20080717

REACTIONS (2)
  - NEUTROPHIL COUNT DECREASED [None]
  - WHITE BLOOD CELL COUNT DECREASED [None]
